FAERS Safety Report 7950703-7 (Version None)
Quarter: 2011Q4

REPORT INFORMATION
  Report Type: 
  Country: None (occurrence: None)
  Receive Date: 20111201
  Receipt Date: 20111117
  Transmission Date: 20120403
  Serious: Yes (Hospitalization)
  Sender: FDA-Public Use
  Company Number: US-BAYER-2011-080153

PATIENT
  Age: 45 Year
  Sex: Female
  Weight: 74.83 kg

DRUGS (5)
  1. POTASSIUM CHLORIDE [Concomitant]
     Dosage: 20 MEQ, BID
     Route: 048
  2. YAZ [Suspect]
     Indication: CONTRACEPTION
     Dosage: UNK
     Dates: start: 20090501, end: 20090801
  3. XANAX [Concomitant]
     Dosage: DAILY DOSE .25 MG
     Route: 048
  4. ALLEGRA [Concomitant]
     Dosage: DAILY DOSE 180 MG
  5. SYNTHROID [Concomitant]
     Indication: THYROID DISORDER
     Dosage: DAILY DOSE 150 ?G
     Route: 048
     Dates: start: 19920101

REACTIONS (5)
  - EMOTIONAL DISTRESS [None]
  - PULMONARY EMBOLISM [None]
  - INJURY [None]
  - ANXIETY [None]
  - PAIN [None]
